FAERS Safety Report 18464206 (Version 1)
Quarter: 2020Q4

REPORT INFORMATION
  Report Type: Report from Study
  Country: FR (occurrence: FR)
  Receive Date: 20201104
  Receipt Date: 20201104
  Transmission Date: 20210114
  Serious: Yes (Hospitalization, Other)
  Sender: FDA-Public Use
  Company Number: FR-JAZZ-2020-FR-009976

PATIENT

DRUGS (1)
  1. DEFITELIO [Suspect]
     Active Substance: DEFIBROTIDE SODIUM
     Indication: VENOOCCLUSIVE DISEASE
     Dosage: 27.6 MILLIGRAM/KILOGRAM/DAY
     Route: 042
     Dates: start: 20141215, end: 20150105

REACTIONS (7)
  - Off label use [Unknown]
  - Clostridium difficile colitis [Recovered/Resolved]
  - Febrile neutropenia [Recovered/Resolved]
  - Haemorrhage [Recovered/Resolved]
  - Cytomegalovirus infection reactivation [Recovered/Resolved]
  - Dermo-hypodermitis [Recovered/Resolved]
  - Graft versus host disease [Unknown]

NARRATIVE: CASE EVENT DATE: 20141215
